FAERS Safety Report 7112889-6 (Version None)
Quarter: 2010Q4

REPORT INFORMATION
  Report Type: 
  Country: None (occurrence: None)
  Receive Date: 20101119
  Receipt Date: 20100504
  Transmission Date: 20110411
  Serious: No
  Sender: FDA-Public Use
  Company Number: US-BRISTOL-MYERS SQUIBB COMPANY-15064181

PATIENT

DRUGS (1)
  1. APROZIDE [Suspect]
     Dosage: APROZIDE TABLETS =150/12.5 MG

REACTIONS (1)
  - PALPITATIONS [None]
